FAERS Safety Report 8424965 (Version 2)
Quarter: 2013Q2

REPORT INFORMATION
  Report Type: Spontaneous
  Country: US (occurrence: US)
  Receive Date: 20120224
  Receipt Date: 20130509
  Transmission Date: 20140414
  Serious: No
  Sender: FDA-Public Use
  Company Number: US-BAYER-2012-016600

PATIENT
  Sex: Female

DRUGS (1)
  1. ALEVE CAPLET/TABLET,MIDOL EXTENDED RELIEF CAPLET [Suspect]
     Dosage: BOTTLE COUNT: NOT REPORTED
     Route: 048

REACTIONS (1)
  - Exposure during pregnancy [Unknown]
